FAERS Safety Report 16779179 (Version 1)
Quarter: 2019Q3

REPORT INFORMATION
  Report Type: Spontaneous
  Country: BR (occurrence: BR)
  Receive Date: 20190906
  Receipt Date: 20190906
  Transmission Date: 20191005
  Serious: Yes (Other)
  Sender: FDA-Public Use
  Company Number: BR-AMGEN-BRASP2019144702

PATIENT
  Age: 53 Year
  Sex: Female

DRUGS (1)
  1. ENBREL [Suspect]
     Active Substance: ETANERCEPT
     Indication: ANKYLOSING SPONDYLITIS
     Dosage: UNK
     Route: 065
     Dates: end: 20190702

REACTIONS (7)
  - Drug ineffective [Unknown]
  - Coccydynia [Unknown]
  - Ankylosing spondylitis [Unknown]
  - Peripheral swelling [Unknown]
  - Disease progression [Unknown]
  - Joint swelling [Unknown]
  - Uveitis [Unknown]
